FAERS Safety Report 8868538 (Version 1)
Quarter: 2012Q4

REPORT INFORMATION
  Report Type: 
  Country: US (occurrence: US)
  Receive Date: 20121025
  Receipt Date: 20121025
  Transmission Date: 20130627
  Serious: Yes (Other)
  Sender: FDA-Public Use
  Company Number: US-AMGEN-USASP2012019940

PATIENT
  Age: 51 Year
  Sex: Male
  Weight: 100.23 kg

DRUGS (4)
  1. ENBREL [Suspect]
     Indication: PSORIATIC ARTHROPATHY
     Dosage: UNK
     Dates: start: 20060701, end: 20120401
  2. HUMIRA [Concomitant]
     Dosage: UNK
     Dates: start: 200604, end: 200607
  3. IMURAN                             /00001501/ [Concomitant]
     Dosage: UNK
     Dates: start: 200501, end: 200603
  4. METHOTREXATE [Concomitant]
     Dosage: UNK
     Dates: start: 200505

REACTIONS (2)
  - Basal cell carcinoma [Unknown]
  - Deformity [Unknown]
